FAERS Safety Report 6719492-8 (Version None)
Quarter: 2010Q2

REPORT INFORMATION
  Report Type: 
  Country: None (occurrence: None)
  Receive Date: 20100510
  Receipt Date: 20100510
  Transmission Date: 20101027
  Serious: Yes (Other)
  Sender: FDA-Public Use
  Company Number: None

PATIENT
  Sex: Female
  Weight: 88.4514 kg

DRUGS (1)
  1. ACTONEL [Suspect]
     Indication: OSTEOPENIA
     Dates: start: 20100401, end: 20100401

REACTIONS (14)
  - ABASIA [None]
  - ABDOMINAL PAIN UPPER [None]
  - ARTHRALGIA [None]
  - BACK PAIN [None]
  - BONE PAIN [None]
  - CHILLS [None]
  - INFLUENZA LIKE ILLNESS [None]
  - JOINT SWELLING [None]
  - JOINT WARMTH [None]
  - LOCAL SWELLING [None]
  - NECK PAIN [None]
  - SWELLING [None]
  - TREMOR [None]
  - WALKING AID USER [None]
